FAERS Safety Report 6784602-3 (Version None)
Quarter: 2010Q2

REPORT INFORMATION
  Report Type: 
  Country: None (occurrence: None)
  Receive Date: 20100622
  Receipt Date: 20100618
  Transmission Date: 20101027
  Serious: Yes (Hospitalization)
  Sender: FDA-Public Use
  Company Number: A0866111A

PATIENT
  Sex: Female

DRUGS (1)
  1. TYKERB [Suspect]
     Route: 065

REACTIONS (1)
  - PULMONARY CONGESTION [None]
